FAERS Safety Report 7702830-7 (Version None)
Quarter: 2011Q3

REPORT INFORMATION
  Report Type: 
  Country: None (occurrence: None)
  Receive Date: 20110817
  Receipt Date: 20110809
  Transmission Date: 20111222
  Serious: Yes (Death, Other)
  Sender: FDA-Public Use
  Company Number: JPI-P-014779

PATIENT
  Age: 72 Year
  Sex: Male

DRUGS (8)
  1. HALOPERIDOL [Concomitant]
  2. ESOMEPRAZOLE MAGNESIUM [Concomitant]
  3. ACETYLSALICYLIC ACID [Concomitant]
  4. TRAMADOL HCL [Concomitant]
  5. QUETIAPINE [Concomitant]
  6. FLURAZEPAM [Concomitant]
  7. CLOPIDOGREL [Concomitant]
  8. XYREM [Suspect]
     Indication: CATAPLEXY
     Dosage: 4.5 GM (2.25 GM, 2 IN 1 D), ORAL
     Route: 048
     Dates: start: 20030317, end: 20080504

REACTIONS (3)
  - CONVULSION [None]
  - NORMAL PRESSURE HYDROCEPHALUS [None]
  - DEMENTIA [None]
